FAERS Safety Report 17412987 (Version 3)
Quarter: 2020Q2

REPORT INFORMATION
  Report Type: Spontaneous
  Country: DE (occurrence: DE)
  Receive Date: 20200213
  Receipt Date: 20200529
  Transmission Date: 20200713
  Serious: Yes (Other)
  Sender: FDA-Public Use
  Company Number: ALC2020DE001349

PATIENT

DRUGS (2)
  1. VITALUX PLUS OMEGA 3 [Suspect]
     Active Substance: MINERALS\OMEGA-3 FATTY ACIDS\VITAMINS
     Indication: NEOVASCULAR AGE-RELATED MACULAR DEGENERATION
     Dosage: UNK
     Route: 065
  2. L-THYROXINE [LEVOTHYROXINE] [Concomitant]
     Active Substance: LEVOTHYROXINE
     Indication: PRODUCT USED FOR UNKNOWN INDICATION
     Dosage: UNK
     Route: 065

REACTIONS (3)
  - Product odour abnormal [Recovered/Resolved]
  - Blindness [Recovered/Resolved]
  - Product physical issue [Recovered/Resolved]

NARRATIVE: CASE EVENT DATE: 20200210
